FAERS Safety Report 23751524 (Version 2)
Quarter: 2024Q2

REPORT INFORMATION
  Report Type: Spontaneous
  Country: GR (occurrence: GR)
  Receive Date: 20240417
  Receipt Date: 20240523
  Transmission Date: 20240716
  Serious: Yes (Hospitalization)
  Sender: FDA-Public Use
  Company Number: GR-BAYER-2024A053944

PATIENT
  Age: 77 Year
  Sex: Female

DRUGS (1)
  1. GADOBUTROL [Suspect]
     Active Substance: GADOBUTROL
     Indication: Magnetic resonance imaging breast
     Dosage: 7 ML, ONCE
     Route: 042
     Dates: start: 20240409, end: 20240409

REACTIONS (4)
  - Anaphylactic reaction [Recovered/Resolved]
  - Blood gases abnormal [Recovered/Resolved]
  - Pulse abnormal [Recovered/Resolved]
  - Bronchospasm [Recovered/Resolved]

NARRATIVE: CASE EVENT DATE: 20240409
